FAERS Safety Report 5081669-8 (Version None)
Quarter: 2006Q3

REPORT INFORMATION
  Report Type: 
  Country: None (occurrence: None)
  Receive Date: 20060816
  Receipt Date: 20060815
  Transmission Date: 20061208
  Serious: Yes (Other)
  Sender: FDA-Public Use
  Company Number: US-GLAXOSMITHKLINE-A0616671A

PATIENT
  Age: 50 Year
  Sex: Female

DRUGS (4)
  1. GOODY'S EXTRA STRENGTH HEADACHE POWDER [Suspect]
     Indication: HEADACHE
  2. LIPITOR [Concomitant]
  3. AMBIEN [Concomitant]
  4. ZYPREXA [Concomitant]

REACTIONS (1)
  - DEPENDENCE [None]
